FAERS Safety Report 5763671-3 (Version None)
Quarter: 2008Q2

REPORT INFORMATION
  Report Type: 
  Country: None (occurrence: None)
  Receive Date: 20080610
  Receipt Date: 20080131
  Transmission Date: 20081010
  Serious: No
  Sender: FDA-Public Use
  Company Number: US-BAYER-200813164NA

PATIENT
  Age: 28 Year
  Sex: Female
  Weight: 73 kg

DRUGS (1)
  1. MIRENA [Suspect]
     Indication: CONTRACEPTION
     Route: 015
     Dates: start: 20071116, end: 20080131

REACTIONS (7)
  - ABDOMINAL PAIN [None]
  - GAIT DISTURBANCE [None]
  - INFLAMMATION [None]
  - MENORRHAGIA [None]
  - MENSTRUATION DELAYED [None]
  - PAIN IN EXTREMITY [None]
  - VAGINAL HAEMORRHAGE [None]
